FAERS Safety Report 4673424-5 (Version None)
Quarter: 2005Q2

REPORT INFORMATION
  Report Type: 
  Country: None (occurrence: None)
  Receive Date: 20050525
  Receipt Date: 20050517
  Transmission Date: 20051028
  Serious: Yes (Death)
  Sender: FDA-Public Use
  Company Number: US-GLAXOSMITHKLINE-A0558956A

PATIENT
  Age: 24 Year
  Sex: Female

DRUGS (5)
  1. WELLBUTRIN [Suspect]
     Indication: ILL-DEFINED DISORDER
     Dosage: 300MG PER DAY
     Route: 048
  2. LEXAPRO [Concomitant]
  3. LAMOTRIGINE [Concomitant]
  4. MINOCYCLINE HCL [Concomitant]
  5. ALCOHOL [Concomitant]

REACTIONS (2)
  - BLOOD ALCOHOL INCREASED [None]
  - DEATH [None]
